FAERS Safety Report 4442267-X (Version None)
Quarter: 2004Q3

REPORT INFORMATION
  Report Type: 
  Country: None (occurrence: None)
  Receive Date: 20040903
  Receipt Date: 20040419
  Transmission Date: 20050211
  Serious: Yes (Other)
  Sender: FDA-Public Use
  Company Number: 2004UW07863

PATIENT
  Age: 61 Year
  Sex: Female
  Weight: 81.6475 kg

DRUGS (4)
  1. CRESTOR [Suspect]
     Indication: BLOOD CHOLESTEROL INCREASED
     Dosage: 10 MG PO
     Route: 048
     Dates: start: 20040301
  2. DIOVAN HCT [Concomitant]
  3. NORVASC [Concomitant]
  4. ASPIRIN [Concomitant]

REACTIONS (2)
  - HUNGER [None]
  - PAIN IN EXTREMITY [None]
